FAERS Safety Report 8218931 (Version 2)
Quarter: 2015Q2

REPORT INFORMATION
  Report Type: Spontaneous
  Country: US (occurrence: US)
  Receive Date: 20111101
  Receipt Date: 20150408
  Transmission Date: 20150821
  Serious: Yes (Other)
  Sender: FDA-Public Use
  Company Number: US-AMGEN-USASP2011029694

PATIENT
  Age: 67 Year
  Sex: Male

DRUGS (1)
  1. ENBREL [Suspect]
     Active Substance: ETANERCEPT
     Indication: RHEUMATOID ARTHRITIS
     Dosage: 25 MG, 2 TIMES/WK
     Route: 065
     Dates: start: 20041105

REACTIONS (10)
  - Pain [Recovered/Resolved]
  - Rheumatoid arthritis [Recovered/Resolved]
  - Finger deformity [Not Recovered/Not Resolved]
  - Adverse drug reaction [Recovered/Resolved]
  - Hand deformity [Not Recovered/Not Resolved]
  - Musculoskeletal disorder [Not Recovered/Not Resolved]
  - Injection site pain [Unknown]
  - Therapeutic response decreased [Not Recovered/Not Resolved]
  - Infection [Unknown]
  - Arthritis [Not Recovered/Not Resolved]

NARRATIVE: CASE EVENT DATE: 201102
